FAERS Safety Report 19011081 (Version 2)
Quarter: 2021Q1

REPORT INFORMATION
  Report Type: Report from Study
  Country: US (occurrence: US)
  Receive Date: 20210316
  Receipt Date: 20210322
  Transmission Date: 20210420
  Serious: Yes (Death)
  Sender: FDA-Public Use
  Company Number: US-PFIZER INC-2021256325

PATIENT
  Age: 57 Year
  Sex: Male

DRUGS (6)
  1. METRONIDAZOLE. [Concomitant]
     Active Substance: METRONIDAZOLE
     Indication: ABDOMINAL ABSCESS
  2. METRONIDAZOLE. [Concomitant]
     Active Substance: METRONIDAZOLE
     Indication: ENTEROCOCCAL INFECTION
     Dosage: UNK
  3. VANCOMYCIN HCL [Suspect]
     Active Substance: VANCOMYCIN HYDROCHLORIDE
     Indication: ENTEROCOCCAL INFECTION
     Dosage: UNK
  4. VANCOMYCIN HCL [Suspect]
     Active Substance: VANCOMYCIN HYDROCHLORIDE
     Indication: ABDOMINAL ABSCESS
  5. CLAVULANATE POTASSIUM\TICARCILLIN [Concomitant]
     Active Substance: CLAVULANATE POTASSIUM\TICARCILLIN
     Indication: ABDOMINAL ABSCESS
  6. CLAVULANATE POTASSIUM\TICARCILLIN [Concomitant]
     Active Substance: CLAVULANATE POTASSIUM\TICARCILLIN
     Indication: ENTEROCOCCAL INFECTION
     Dosage: UNK

REACTIONS (1)
  - Drug ineffective [Fatal]
